FAERS Safety Report 7583494-2 (Version None)
Quarter: 2011Q2

REPORT INFORMATION
  Report Type: 
  Country: None (occurrence: None)
  Receive Date: 20110630
  Receipt Date: 20110622
  Transmission Date: 20111010
  Serious: Yes (Other)
  Sender: FDA-Public Use
  Company Number: US-ROCHE-770046

PATIENT
  Sex: Male
  Weight: 68 kg

DRUGS (2)
  1. ACCUTANE [Suspect]
     Indication: ACNE
     Route: 065
     Dates: start: 19900101, end: 19940101
  2. MARIJUANA [Concomitant]
     Dosage: IN 1990S

REACTIONS (8)
  - ANXIETY [None]
  - INFLAMMATORY BOWEL DISEASE [None]
  - DIVERTICULITIS [None]
  - RECTAL FISSURE [None]
  - CROHN'S DISEASE [None]
  - COLITIS ULCERATIVE [None]
  - LARGE INTESTINE PERFORATION [None]
  - IRRITABLE BOWEL SYNDROME [None]
